FAERS Safety Report 6182277-8 (Version None)
Quarter: 2009Q2

REPORT INFORMATION
  Report Type: 
  Country: None (occurrence: None)
  Receive Date: 20090505
  Receipt Date: 20090505
  Transmission Date: 20091009
  Serious: Yes (Other)
  Sender: FDA-Public Use
  Company Number: None

PATIENT
  Age: 62 Year
  Sex: Female
  Weight: 53.5244 kg

DRUGS (1)
  1. SINGULAIR [Suspect]
     Indication: SEASONAL ALLERGY
     Dosage: 1 DAILY PO
     Route: 048
     Dates: start: 20090401, end: 20090415

REACTIONS (3)
  - ERYTHEMA [None]
  - RASH MACULAR [None]
  - SKIN EXFOLIATION [None]
